FAERS Safety Report 18268302 (Version 1)
Quarter: 2020Q3

REPORT INFORMATION
  Report Type: Spontaneous
  Country: CN (occurrence: CN)
  Receive Date: 20200915
  Receipt Date: 20200915
  Transmission Date: 20201103
  Serious: Yes (Other)
  Sender: FDA-Public Use
  Company Number: CN-ASTRAZENECA-2020SF13987

PATIENT
  Sex: Female

DRUGS (2)
  1. ACARBOSE. [Concomitant]
     Active Substance: ACARBOSE
  2. FORXIGA [Suspect]
     Active Substance: DAPAGLIFLOZIN
     Indication: TYPE 2 DIABETES MELLITUS
     Route: 048

REACTIONS (2)
  - Hepatitis [Unknown]
  - Transaminases increased [Recovering/Resolving]
